FAERS Safety Report 4726350-7 (Version None)
Quarter: 2005Q3

REPORT INFORMATION
  Report Type: 
  Country: None (occurrence: None)
  Receive Date: 20050725
  Receipt Date: 20050711
  Transmission Date: 20060218
  Serious: Yes (Other)
  Sender: FDA-Public Use
  Company Number: 2005-BP-11661RO

PATIENT
  Age: 85 Year
  Sex: Male

DRUGS (3)
  1. ACETAMINOPHEN W/ CODEINE [Suspect]
     Indication: BACK PAIN
     Dosage: ACETAMINOPHEN 500MG W/CODEINE 10MG (SEE TEXT); PO
     Route: 048
  2. NOLOTIL [Concomitant]
  3. EFFERALGAN (PARACETAMOL) [Concomitant]

REACTIONS (5)
  - DERMATITIS EXFOLIATIVE [None]
  - ERYTHEMA [None]
  - PRURITUS [None]
  - TYPE IV HYPERSENSITIVITY REACTION [None]
  - WRONG DRUG ADMINISTERED [None]
